FAERS Safety Report 19623655 (Version 5)
Quarter: 2022Q4

REPORT INFORMATION
  Report Type: Spontaneous
  Country: JP (occurrence: JP)
  Receive Date: 20210729
  Receipt Date: 20221016
  Transmission Date: 20230112
  Serious: Yes (Other)
  Sender: FDA-Public Use
  Company Number: JP-ONO-2021JP017933

PATIENT
  Age: 66 Year
  Sex: Female
  Weight: 65 kg

DRUGS (13)
  1. KYPROLIS [Suspect]
     Active Substance: CARFILZOMIB
     Indication: Plasma cell myeloma
     Dosage: 30 MILLIGRAM
     Route: 040
     Dates: start: 20210511
  2. KYPROLIS [Suspect]
     Active Substance: CARFILZOMIB
     Dosage: 80 MILLIGRAM
     Route: 065
     Dates: start: 20210518, end: 20210709
  3. DARZALEX [Concomitant]
     Active Substance: DARATUMUMAB
     Indication: Plasma cell myeloma
     Dosage: 400 MILLIGRAM
     Route: 042
     Dates: start: 20210511, end: 20210512
  4. DARZALEX [Concomitant]
     Active Substance: DARATUMUMAB
     Dosage: 800 MILLIGRAM
     Dates: start: 20210518
  5. DEXAMETHASONE SODIUM PHOSPHATE [Concomitant]
     Active Substance: DEXAMETHASONE SODIUM PHOSPHATE
     Indication: Plasma cell myeloma
     Dosage: 19.8 MILLIGRAM
     Route: 042
     Dates: start: 20210511
  6. NEXIUM I.V. [Concomitant]
     Active Substance: ESOMEPRAZOLE SODIUM
     Dosage: UNK
     Route: 048
  7. SULFAMETHOXAZOLE\TRIMETHOPRIM [Concomitant]
     Active Substance: SULFAMETHOXAZOLE\TRIMETHOPRIM
     Dosage: UNK
     Route: 048
  8. ACYCLOVIR [Concomitant]
     Active Substance: ACYCLOVIR
     Indication: Prophylaxis
     Dosage: 200 MILLIGRAM, QD
     Route: 048
     Dates: start: 20151030
  9. AMLODIPINE [Concomitant]
     Active Substance: AMLODIPINE BESYLATE
     Dosage: 5 MILLIGRAM, QD
     Route: 048
     Dates: start: 20201005
  10. PRAVASTATIN SODIUM [Concomitant]
     Active Substance: PRAVASTATIN SODIUM
     Dosage: 10 MILLIGRAM, QD
     Route: 048
     Dates: start: 20201102
  11. PREGABALIN [Concomitant]
     Active Substance: PREGABALIN
     Dosage: 75 MILLIGRAM,Q12H
     Route: 048
     Dates: start: 20210514
  12. METHYLCOBALAMIN [Concomitant]
     Active Substance: METHYLCOBALAMIN
     Dosage: 0.5 MILLIGRAM, Q12H
     Route: 048
     Dates: start: 20200608
  13. SHAKUYAKUKANZOTO [Concomitant]
     Active Substance: HERBALS
     Dosage: 2.5 GRAM, Q12H
     Route: 048
     Dates: start: 20210514

REACTIONS (1)
  - Haemolytic anaemia [Recovered/Resolved]

NARRATIVE: CASE EVENT DATE: 20210610
